FAERS Safety Report 20969606 (Version 1)
Quarter: 2022Q2

REPORT INFORMATION
  Report Type: Report from Study
  Country: FR (occurrence: FR)
  Receive Date: 20220616
  Receipt Date: 20220616
  Transmission Date: 20220720
  Serious: Yes (Death, Hospitalization)
  Sender: FDA-Public Use
  Company Number: FR-SA-96000914

PATIENT
  Age: 58 Year
  Sex: Female

DRUGS (3)
  1. DILTIAZEM HYDROCHLORIDE [Suspect]
     Active Substance: DILTIAZEM HYDROCHLORIDE
     Indication: Hypertension
     Route: 048
     Dates: start: 19950103
  2. BENFLUOREX [Concomitant]
     Active Substance: BENFLUOREX
     Indication: Product used for unknown indication
  3. NAFRONYL [Concomitant]
     Active Substance: NAFRONYL
     Indication: Product used for unknown indication

REACTIONS (1)
  - Acute kidney injury [Fatal]

NARRATIVE: CASE EVENT DATE: 19950101
